FAERS Safety Report 5116665-5 (Version None)
Quarter: 2006Q3

REPORT INFORMATION
  Report Type: 
  Country: None (occurrence: None)
  Receive Date: 20060928
  Receipt Date: 20060918
  Transmission Date: 20061208
  Serious: Yes (Hospitalization)
  Sender: FDA-Public Use
  Company Number: FR-GLAXOSMITHKLINE-B0438426A

PATIENT
  Age: 74 Year
  Sex: Male
  Weight: 108 kg

DRUGS (4)
  1. ZANTAC [Suspect]
     Route: 042
     Dates: start: 20060816
  2. POLARAMINE [Suspect]
     Route: 042
     Dates: start: 20060816
  3. CISPLATIN [Suspect]
     Route: 042
     Dates: start: 20060816
  4. ERBITUX [Suspect]
     Route: 042
     Dates: start: 20060816

REACTIONS (1)
  - CONJUNCTIVITIS [None]
